FAERS Safety Report 12489365 (Version 1)
Quarter: 2016Q2

REPORT INFORMATION
  Report Type: Spontaneous
  Country: US (occurrence: US)
  Receive Date: 20160622
  Receipt Date: 20160622
  Transmission Date: 20160815
  Serious: Yes (Other)
  Sender: FDA-Public Use
  Company Number: US-LPDUSPRD-20160540

PATIENT
  Age: 52 Year
  Sex: Male
  Weight: 90 kg

DRUGS (11)
  1. PHENYLEPHRINE [Concomitant]
     Active Substance: PHENYLEPHRINE\PHENYLEPHRINE HYDROCHLORIDE
     Dosage: 0.2 MCG/KG/MIN
     Route: 042
  2. PROPOFOL. [Concomitant]
     Active Substance: PROPOFOL
     Dosage: 200 MG
     Route: 042
  3. LIDOCAINE HCL INJECTION, USP (0517-9402-01) [Concomitant]
     Active Substance: LIDOCAINE HYDROCHLORIDE
     Dosage: 80 MG
     Route: 042
  4. ROCURONIUM [Concomitant]
     Active Substance: ROCURONIUM BROMIDE
     Dosage: 50 MG
     Route: 065
  5. ISOFLURANE. [Concomitant]
     Active Substance: ISOFLURANE
     Dosage: 0.8-1%
     Route: 065
  6. EPINEPHRINE. [Concomitant]
     Active Substance: EPINEPHRINE
     Dosage: 30 ML
     Route: 065
  7. ROPIVACAINE [Concomitant]
     Active Substance: ROPIVACAINE
     Dosage: 30 ML
     Route: 065
  8. FENTANYL. [Concomitant]
     Active Substance: FENTANYL
     Dosage: 75 MCG
     Route: 042
  9. GLYCOPYRROLATE. [Concomitant]
     Active Substance: GLYCOPYRROLATE
     Dosage: 0.4 MG
     Route: 042
  10. EPINEPHRINE INJECTION, USP (1071-25) [Suspect]
     Active Substance: EPINEPHRINE
     Dosage: 1MCG/ML
     Route: 014
  11. EPHEDRINE. [Concomitant]
     Active Substance: EPHEDRINE
     Dosage: 2 DOSES: 10 MG / 5MG
     Route: 042

REACTIONS (3)
  - Tachycardia [Unknown]
  - Off label use [Unknown]
  - Hypertension [Unknown]
